FAERS Safety Report 9664458 (Version 2)
Quarter: 2013Q4

REPORT INFORMATION
  Report Type: Spontaneous
  Country: TW (occurrence: TW)
  Receive Date: 20131101
  Receipt Date: 20131107
  Transmission Date: 20140711
  Serious: Yes (Hospitalization)
  Sender: FDA-Public Use
  Company Number: TW-009507513-1310TWN012533

PATIENT
  Age: 60 Year
  Sex: Male

DRUGS (1)
  1. FOSAMAX PLUS TABLETS [Suspect]
     Indication: OSTEOPOROSIS
     Dosage: 70MG/2800 IU, WEEKLY
     Route: 048

REACTIONS (1)
  - Gastric haemorrhage [Recovering/Resolving]
